FAERS Safety Report 24530983 (Version 2)
Quarter: 2024Q4

REPORT INFORMATION
  Report Type: Report from Study
  Country: PT (occurrence: PT)
  Receive Date: 20241021
  Receipt Date: 20241105
  Transmission Date: 20250115
  Serious: Yes (Other)
  Sender: ABBVIE
  Company Number: PT-ABBVIE-5969118

PATIENT
  Age: 28 Year
  Sex: Male

DRUGS (6)
  1. CARBIDOPA\LEVODOPA [Suspect]
     Active Substance: CARBIDOPA\LEVODOPA
     Indication: Parkinson^s disease
     Dosage: 240 MG + 12 MG,?LAST ADMIN:2024,?FREQUENCY TEXT: BASE0.15;HIGHNA;LOWNA;LOAD0.10;EXTRA0.10
     Route: 058
     Dates: start: 20240711
  2. CARBIDOPA\LEVODOPA [Suspect]
     Active Substance: CARBIDOPA\LEVODOPA
     Dosage: 240 MG + 12 MG,?FREQUENCY TEXT: BASE0.19;HIGHNA;LOWNA;LOAD0.10;EXTRA0.15
     Route: 058
     Dates: start: 20241015
  3. CARBIDOPA\LEVODOPA [Suspect]
     Active Substance: CARBIDOPA\LEVODOPA
     Dosage: 240 MG + 12 MG,?FIRST ADMIN: 2024,?FREQUENCY TEXT: BASE0.18;HIGHNA;LOWNA;LOAD0.10;EXTRA0.15
     Route: 058
     Dates: end: 20241015
  4. CLOZAPINE [Concomitant]
     Active Substance: CLOZAPINE
     Indication: Product used for unknown indication
     Dosage: 1 TABLET,?START DATE TEXT: BEFORE DUODOPA,?FREQUENCY TEXT: AT BEDTIME
     Route: 048
  5. DOMPERIDONE [Concomitant]
     Active Substance: DOMPERIDONE
     Indication: Product used for unknown indication
     Dosage: START DATE TEXT: BEFORE DUODOPA
     Route: 048
  6. XADAGO [Concomitant]
     Active Substance: SAFINAMIDE MESYLATE
     Indication: Parkinson^s disease
     Dosage: 1 TABLET,?XADAGO 100 (SAFINAMIDE),?START DATE TEXT: BEFORE DUODOPA
     Route: 048

REACTIONS (2)
  - Suicidal ideation [Not Recovered/Not Resolved]
  - Tremor [Recovering/Resolving]

NARRATIVE: CASE EVENT DATE: 20241001
